FAERS Safety Report 19951833 (Version 2)
Quarter: 2021Q4

REPORT INFORMATION
  Report Type: Report from Study
  Country: US (occurrence: US)
  Receive Date: 20211014
  Receipt Date: 20211027
  Transmission Date: 20220303
  Serious: Yes (Hospitalization)
  Sender: FDA-Public Use
  Company Number: US-BIOGEN-2021BI01054553

PATIENT
  Sex: Female

DRUGS (2)
  1. TYSABRI [Suspect]
     Active Substance: NATALIZUMAB
     Indication: Multiple sclerosis
     Route: 041
     Dates: start: 20200624
  2. TYSABRI [Suspect]
     Active Substance: NATALIZUMAB
     Route: 041

REACTIONS (2)
  - Cerebrovascular accident [Unknown]
  - COVID-19 [Not Recovered/Not Resolved]
